FAERS Safety Report 9668736 (Version 2)
Quarter: 2014Q1

REPORT INFORMATION
  Report Type: Spontaneous
  Country: US (occurrence: US)
  Receive Date: 20131105
  Receipt Date: 20140227
  Transmission Date: 20141002
  Serious: Yes (Death, Hospitalization, Other)
  Sender: FDA-Public Use
  Company Number: US-MPIJNJ-2013MPI000777

PATIENT
  Age: 80 Year
  Sex: Female
  Weight: 56.42 kg

DRUGS (2)
  1. VELCADE [Suspect]
     Indication: PLASMA CELL MYELOMA
     Dosage: 2.7 MG, 1/WEEK
     Route: 042
     Dates: start: 20130306, end: 20130619
  2. DECADRON                           /00016001/ [Concomitant]
     Dosage: 10 MG, 1/WEEK
     Dates: start: 20130306, end: 20130619

REACTIONS (1)
  - Plasma cell myeloma [Fatal]
